FAERS Safety Report 4921188-X (Version None)
Quarter: 2006Q1

REPORT INFORMATION
  Report Type: 
  Country: None (occurrence: None)
  Receive Date: 20060217
  Receipt Date: 20060207
  Transmission Date: 20060701
  Serious: Yes (Death, Hospitalization, Other)
  Sender: FDA-Public Use
  Company Number: 2005130440

PATIENT
  Age: 79 Year
  Sex: Male
  Weight: 35 kg

DRUGS (7)
  1. VFEND [Suspect]
     Indication: PULMONARY MYCOSIS
     Dosage: 400 MG INTRAVENOUS
     Route: 042
     Dates: start: 20050714, end: 20050806
  2. VFEND [Suspect]
     Indication: PULMONARY MYCOSIS
     Dosage: 400 MG ORAL
     Route: 048
     Dates: start: 20050819, end: 20050912
  3. CIPROFLOXACIN HYDROCHLORIDE [Suspect]
     Indication: PULMONARY MYCOSIS
     Dosage: 400 MG ORAL
     Route: 048
     Dates: start: 20050812, end: 20050911
  4. CLARITHROMYCIN [Suspect]
     Indication: ILL-DEFINED DISORDER
     Dosage: 2 TABLETS ORAL
     Route: 048
     Dates: start: 20050812, end: 20050911
  5. HABEKACIN [Concomitant]
  6. MICAFUNGIN (MICAFUNGIN) [Concomitant]
  7. MUCOSTA (REBAMIPIDE) [Concomitant]

REACTIONS (19)
  - ALANINE AMINOTRANSFERASE INCREASED [None]
  - ANOREXIA [None]
  - ASPARTATE AMINOTRANSFERASE INCREASED [None]
  - BLOOD GLUCOSE INCREASED [None]
  - BLOOD PRESSURE IMMEASURABLE [None]
  - BRADYCARDIA [None]
  - CARDIAC ARREST [None]
  - DYSPNOEA [None]
  - HAEMOGLOBIN DECREASED [None]
  - HEPATIC FUNCTION ABNORMAL [None]
  - HYPOGLYCAEMIA [None]
  - LOSS OF CONSCIOUSNESS [None]
  - MALAISE [None]
  - PULSE ABSENT [None]
  - PYREXIA [None]
  - RESPIRATORY ARREST [None]
  - SUDDEN CARDIAC DEATH [None]
  - THERAPY NON-RESPONDER [None]
  - TOXIC INDUCED ENCEPHALOPATHY [None]
